FAERS Safety Report 9171615 (Version 1)
Quarter: 2013Q1

REPORT INFORMATION
  Report Type: Spontaneous
  Country: US (occurrence: US)
  Receive Date: 20130319
  Receipt Date: 20130319
  Transmission Date: 20140127
  Serious: No
  Sender: FDA-Public Use
  Company Number: US-BAYER-2013-034363

PATIENT
  Sex: 0

DRUGS (2)
  1. ALEVE [Suspect]
     Indication: HEADACHE
  2. TYLENOL [Suspect]

REACTIONS (4)
  - Somnolence [None]
  - Oropharyngeal pain [None]
  - Therapeutic product ineffective [None]
  - Product quality issue [None]
